FAERS Safety Report 8612380-1 (Version None)
Quarter: 2012Q3

REPORT INFORMATION
  Report Type: 
  Country: None (occurrence: None)
  Receive Date: 20120822
  Receipt Date: 20120814
  Transmission Date: 20120928
  Serious: Yes (Hospitalization)
  Sender: FDA-Public Use
  Company Number: PHHY2012LT071695

PATIENT
  Age: 17 Year
  Sex: Female
  Weight: 50 kg

DRUGS (1)
  1. DICLAC [Suspect]
     Dosage: 30 DF, UNK
     Dates: start: 20120813, end: 20120813

REACTIONS (5)
  - TREMOR [None]
  - SUICIDE ATTEMPT [None]
  - HEART RATE INCREASED [None]
  - ASTHENIA [None]
  - AGITATION [None]
